FAERS Safety Report 12672717 (Version 1)
Quarter: 2016Q3

REPORT INFORMATION
  Report Type: Spontaneous
  Country: US (occurrence: US)
  Receive Date: 20160822
  Receipt Date: 20160822
  Transmission Date: 20161109
  Serious: No
  Sender: FDA-Public Use
  Company Number: US-JNJFOC-20160716221

PATIENT
  Age: 55 Year
  Sex: Female
  Weight: 70.31 kg

DRUGS (2)
  1. WOMENS ROGAINE UNSCENTED [Suspect]
     Active Substance: MINOXIDIL
     Route: 061
  2. WOMENS ROGAINE UNSCENTED [Suspect]
     Active Substance: MINOXIDIL
     Indication: ALOPECIA
     Dosage: A CAP FULL
     Route: 061
     Dates: start: 20160715, end: 20160717

REACTIONS (6)
  - Hair disorder [Recovered/Resolved]
  - Product use issue [Unknown]
  - Medication residue present [Recovered/Resolved]
  - Overdose [Recovered/Resolved]
  - Hair texture abnormal [Recovered/Resolved]
  - Product physical issue [Unknown]

NARRATIVE: CASE EVENT DATE: 20160715
